FAERS Safety Report 12552136 (Version 1)
Quarter: 2016Q3

REPORT INFORMATION
  Report Type: Spontaneous
  Country: US (occurrence: None)
  Receive Date: 20160712
  Receipt Date: 20160712
  Transmission Date: 20161109
  Serious: Yes (Other)
  Sender: FDA-Public Use
  Company Number: None

PATIENT
  Age: 59 Year
  Sex: Female

DRUGS (1)
  1. CARBAMAZEPINE. [Suspect]
     Active Substance: CARBAMAZEPINE
     Indication: TRIGEMINAL NEURALGIA
     Route: 048
     Dates: start: 20160619, end: 20160622

REACTIONS (5)
  - Pain [None]
  - Impaired work ability [None]
  - Speech disorder [None]
  - Product substitution issue [None]
  - Hypoaesthesia [None]

NARRATIVE: CASE EVENT DATE: 20160621
